FAERS Safety Report 7099545-8 (Version None)
Quarter: 2010Q4

REPORT INFORMATION
  Report Type: 
  Country: None (occurrence: None)
  Receive Date: 20101112
  Receipt Date: 20081121
  Transmission Date: 20110411
  Serious: No
  Sender: FDA-Public Use
  Company Number: US-KINGPHARMUSA00001-K200801336

PATIENT
  Age: 57 Year
  Sex: Male

DRUGS (1)
  1. LEVOXYL [Suspect]
     Dosage: 88 MCG, UNK
     Route: 048

REACTIONS (3)
  - BLOOD THYROID STIMULATING HORMONE INCREASED [None]
  - DRUG INEFFECTIVE [None]
  - ORAL DISCOMFORT [None]
